FAERS Safety Report 7235875-4 (Version None)
Quarter: 2011Q1

REPORT INFORMATION
  Report Type: 
  Country: None (occurrence: None)
  Receive Date: 20110120
  Receipt Date: 20110112
  Transmission Date: 20110831
  Serious: Yes (Hospitalization)
  Sender: FDA-Public Use
  Company Number: FR-ROCHE-753222

PATIENT
  Sex: Male

DRUGS (5)
  1. VANCOMYCINE [Concomitant]
     Dates: start: 20100901
  2. FLUOROURACIL [Concomitant]
     Route: 042
     Dates: start: 20090801, end: 20100101
  3. IRINOTECAN [Concomitant]
     Route: 042
     Dates: start: 20090801, end: 20100101
  4. FOLINIC ACID [Concomitant]
     Route: 042
     Dates: start: 20090801, end: 20100101
  5. AVASTIN [Suspect]
     Dosage: STRENGTH: 25MG/M, FORM:DRIP SOLUTION
     Route: 042
     Dates: start: 20090801, end: 20100601

REACTIONS (1)
  - FOCAL SEGMENTAL GLOMERULOSCLEROSIS [None]
